FAERS Safety Report 8733572 (Version 2)
Quarter: 2012Q4

REPORT INFORMATION
  Report Type: 
  Country: US (occurrence: US)
  Receive Date: 20120821
  Receipt Date: 20121024
  Transmission Date: 20130627
  Serious: Yes (Hospitalization)
  Sender: FDA-Public Use
  Company Number: US-BAYER-2012-084442

PATIENT
  Age: 57 Year
  Sex: Male
  Weight: 95.24 kg

DRUGS (23)
  1. BETASERON [Suspect]
     Indication: MS
  2. COPAXONE [Concomitant]
     Indication: MS
     Dosage: 1 DF, QD
     Dates: start: 20120612, end: 20120717
  3. ZYRTEC [Concomitant]
     Indication: MULTIPLE ALLERGIES
  4. ASPIRIN [Concomitant]
     Indication: HEART DISORDER
  5. MULTIVITAMIN [Concomitant]
  6. TYLENOL [Concomitant]
     Dosage: UNK UNK, PRN
  7. CALCIUM W/COLECALCIFEROL [Concomitant]
     Dosage: 1000mg/100IU gel
  8. HYDROXYZINE HYDROCHLORIDE [Concomitant]
     Indication: HIVES
  9. BENADRYL [Concomitant]
     Indication: HIVES
  10. BENADRYL [Concomitant]
     Indication: HIVES
  11. ZANTAC [Concomitant]
     Indication: HIVES
  12. ROPINIROLE HYDROCHLORIDE [Concomitant]
     Indication: RESTLESS LEG SYNDROME
  13. BACLOFEN [Concomitant]
     Indication: MS
  14. MODAFINIL [Concomitant]
     Indication: MS
  15. HYDRALAZINE [Concomitant]
     Indication: HYPERTENSION
  16. TRAVATAN [Concomitant]
     Indication: GLAUCOMA
  17. FUROSEMID [Concomitant]
     Indication: EDEMA
     Dosage: UNK UNK, TIW
  18. TRAMADOL [Concomitant]
     Indication: PAIN
     Dosage: UNK UNK, PRN
  19. PAROXETINE [Concomitant]
     Indication: DEPRESSION
  20. SIMVASTATIN [Concomitant]
     Indication: HIGH CHOLESTEROL
  21. B12 [Concomitant]
     Dosage: UNK UNK, Q2MON
  22. INFLUENZA VACCIN [Concomitant]
  23. ALLERGY SHOTS [Concomitant]
     Dosage: UNK UNK, BIW

REACTIONS (1)
  - Urticaria [None]
